FAERS Safety Report 8230900-6 (Version None)
Quarter: 2012Q1

REPORT INFORMATION
  Report Type: 
  Country: None (occurrence: None)
  Receive Date: 20120323
  Receipt Date: 20120319
  Transmission Date: 20120608
  Serious: Yes (Death)
  Sender: FDA-Public Use
  Company Number: US-CELGENEUS-163-21880-12032256

PATIENT
  Sex: Female

DRUGS (3)
  1. REVLIMID [Suspect]
     Dosage: 5 MILLIGRAM
     Route: 048
     Dates: start: 20120215, end: 20120101
  2. MS CONTIN [Concomitant]
     Route: 065
  3. MULTI-VITAMINS [Concomitant]
     Route: 065

REACTIONS (1)
  - DEATH [None]
